FAERS Safety Report 20835004 (Version 1)
Quarter: 2022Q2

REPORT INFORMATION
  Report Type: Spontaneous
  Country: US (occurrence: US)
  Receive Date: 20220516
  Receipt Date: 20220516
  Transmission Date: 20220721
  Serious: No
  Sender: FDA-Public Use
  Company Number: US-PFIZER INC-202200693298

PATIENT
  Age: 75 Year
  Sex: Female
  Weight: 48.99 kg

DRUGS (1)
  1. EFFEXOR XR [Suspect]
     Active Substance: VENLAFAXINE HYDROCHLORIDE
     Indication: Depression
     Dosage: 75 MG, 2X/DAY(75MG IN MORNING AND 75MG IN THE EVENING)
     Route: 048
     Dates: start: 2002

REACTIONS (1)
  - Feeling abnormal [Unknown]
